FAERS Safety Report 24711018 (Version 2)
Quarter: 2024Q4

REPORT INFORMATION
  Report Type: Spontaneous
  Country: RU (occurrence: RU)
  Receive Date: 20241209
  Receipt Date: 20241230
  Transmission Date: 20250115
  Serious: Yes (Life-Threatening, Other)
  Sender: SANOFI AVENTIS
  Company Number: RU-SA-2024SA361973

PATIENT
  Age: 34 Year
  Sex: Female
  Weight: 47 kg

DRUGS (1)
  1. APIDRA SOLOSTAR [Suspect]
     Active Substance: INSULIN GLULISINE
     Indication: Diabetes mellitus
     Dosage: 2 UNITS PER HOUR USING AN INSULIN PUMP, WITH A BOLUS FOR MEALS, DAILY DOSE 65 UNITS
     Route: 058
     Dates: start: 20240917, end: 20241014

REACTIONS (3)
  - Ketoacidosis [Recovered/Resolved]
  - Urine ketone body present [Recovered/Resolved]
  - Hyperglycaemia [Recovered/Resolved]

NARRATIVE: CASE EVENT DATE: 20241001
